FAERS Safety Report 12082278 (Version 6)
Quarter: 2022Q2

REPORT INFORMATION
  Report Type: Other
  Country: CA (occurrence: None)
  Receive Date: 20160217
  Receipt Date: 20220617
  Transmission Date: 20220721
  Serious: Yes (Other)
  Sender: FDA-Public Use
  Company Number: CA-ROCHE-1177020

PATIENT
  Age: 54 Year
  Sex: Female
  Weight: 55.5 kg

DRUGS (36)
  1. ACTEMRA [Suspect]
     Active Substance: TOCILIZUMAB
     Indication: Rheumatoid arthritis
     Route: 042
     Dates: start: 20110812, end: 20111201
  2. ACTEMRA [Suspect]
     Active Substance: TOCILIZUMAB
     Route: 042
     Dates: start: 20120104, end: 20120618
  3. ACTEMRA [Suspect]
     Active Substance: TOCILIZUMAB
     Route: 042
     Dates: start: 20121010, end: 20150323
  4. ACTEMRA [Suspect]
     Active Substance: TOCILIZUMAB
     Route: 042
     Dates: start: 20150420, end: 20151117
  5. ACTEMRA [Suspect]
     Active Substance: TOCILIZUMAB
     Route: 042
     Dates: start: 20151216, end: 20161109
  6. ACTEMRA [Suspect]
     Active Substance: TOCILIZUMAB
     Route: 042
     Dates: start: 20161209, end: 20171114
  7. ACTEMRA [Suspect]
     Active Substance: TOCILIZUMAB
     Route: 042
     Dates: start: 20171211, end: 20181113
  8. ACTEMRA [Suspect]
     Active Substance: TOCILIZUMAB
     Route: 042
     Dates: start: 20181211, end: 20190521
  9. ACTEMRA [Suspect]
     Active Substance: TOCILIZUMAB
     Route: 042
     Dates: start: 20120716, end: 20120813
  10. ACTEMRA [Suspect]
     Active Substance: TOCILIZUMAB
     Route: 042
     Dates: start: 20120911, end: 20120911
  11. ACTEMRA [Suspect]
     Active Substance: TOCILIZUMAB
     Route: 042
     Dates: start: 20211118
  12. CRESTOR [Suspect]
     Active Substance: ROSUVASTATIN CALCIUM
     Indication: Blood cholesterol increased
     Route: 065
  13. ZOCOR [Suspect]
     Active Substance: SIMVASTATIN
     Indication: Blood cholesterol increased
     Route: 065
     Dates: start: 201412
  14. LIPITOR [Suspect]
     Active Substance: ATORVASTATIN CALCIUM
     Indication: Hypercholesterolaemia
     Route: 065
  15. SULFASALAZINE [Suspect]
     Active Substance: SULFASALAZINE
     Indication: Product used for unknown indication
     Route: 065
  16. METHOTREXATE [Suspect]
     Active Substance: METHOTREXATE
     Indication: Product used for unknown indication
     Route: 065
  17. ARAVA [Suspect]
     Active Substance: LEFLUNOMIDE
     Indication: Rheumatoid arthritis
     Route: 065
  18. ORENCIA [Suspect]
     Active Substance: ABATACEPT
     Indication: Product used for unknown indication
     Route: 065
  19. LEFLUNOMIDE [Concomitant]
     Active Substance: LEFLUNOMIDE
  20. RANITIDINE [Concomitant]
     Active Substance: RANITIDINE
  21. PAXIL [Concomitant]
     Active Substance: PAROXETINE HYDROCHLORIDE
  22. ZANTAC [Concomitant]
     Active Substance: RANITIDINE HYDROCHLORIDE
  23. VENTOLIN [Concomitant]
     Active Substance: ALBUTEROL SULFATE
     Dosage: AS NEEDED
  24. EBASTINE [Concomitant]
     Active Substance: EBASTINE
  25. SIMPONI [Concomitant]
     Active Substance: GOLIMUMAB
     Indication: Rheumatoid arthritis
  26. RESTASIS [Concomitant]
     Active Substance: CYCLOSPORINE
  27. NORITATE [Concomitant]
     Active Substance: METRONIDAZOLE
  28. EZETIMIBE [Concomitant]
     Active Substance: EZETIMIBE
  29. ECTOSONE [Concomitant]
  30. DESLORATADINE [Concomitant]
     Active Substance: DESLORATADINE
  31. CLOTRIMAZOLE [Concomitant]
     Active Substance: CLOTRIMAZOLE
  32. VITAMIN D3 [Concomitant]
     Active Substance: CHOLECALCIFEROL
  33. OMEPRAZOLE [Concomitant]
     Active Substance: OMEPRAZOLE
  34. BETADERM [Concomitant]
     Active Substance: BETAMETHASONE VALERATE
  35. NIZORAL [Concomitant]
     Active Substance: KETOCONAZOLE
  36. ESOMEPRAZOLE [Concomitant]
     Active Substance: ESOMEPRAZOLE

REACTIONS (61)
  - Blood cholesterol increased [Not Recovered/Not Resolved]
  - Weight decreased [Unknown]
  - Arthrodesis [Not Recovered/Not Resolved]
  - Nausea [Unknown]
  - Vomiting [Unknown]
  - Arthropathy [Unknown]
  - Diarrhoea [Unknown]
  - Haematochezia [Unknown]
  - Osteoarthritis [Unknown]
  - Hypercholesterolaemia [Unknown]
  - Endocrine ophthalmopathy [Unknown]
  - Toxic shock syndrome [Unknown]
  - Psoriasis [Unknown]
  - Foot deformity [Unknown]
  - Bunion operation [Unknown]
  - Dyslipidaemia [Unknown]
  - Arthrodesis [Recovered/Resolved]
  - Gait inability [Not Recovered/Not Resolved]
  - Ill-defined disorder [Not Recovered/Not Resolved]
  - Contusion [Recovering/Resolving]
  - Myalgia [Unknown]
  - Peripheral swelling [Recovering/Resolving]
  - Pain in extremity [Not Recovered/Not Resolved]
  - Skin laceration [Unknown]
  - Hypersensitivity [Unknown]
  - Abdominal pain upper [Unknown]
  - Hypersensitivity [Recovering/Resolving]
  - Eye infection [Recovered/Resolved]
  - Weight increased [Unknown]
  - Peripheral swelling [Unknown]
  - Abdominal pain [Unknown]
  - Flatulence [Unknown]
  - Joint swelling [Unknown]
  - Synovitis [Unknown]
  - Synovial cyst [Unknown]
  - Joint swelling [Unknown]
  - Swelling of eyelid [Unknown]
  - Eyelid disorder [Unknown]
  - Mean cell haemoglobin increased [Unknown]
  - Feeding disorder [Unknown]
  - Pain [Not Recovered/Not Resolved]
  - Vitamin D decreased [Unknown]
  - Rash [Unknown]
  - Headache [Unknown]
  - Skin disorder [Unknown]
  - Pruritus [Unknown]
  - Skin ulcer [Unknown]
  - Nasal ulcer [Unknown]
  - Treatment failure [Unknown]
  - Fatigue [Unknown]
  - Gastrointestinal disorder [Unknown]
  - Back pain [Unknown]
  - Pruritus [Unknown]
  - Contusion [Unknown]
  - Muscle spasms [Unknown]
  - Asthenia [Unknown]
  - Dyspepsia [Unknown]
  - Pelvic pain [Unknown]
  - C-reactive protein increased [Unknown]
  - Ill-defined disorder [Unknown]
  - Tenosynovitis stenosans [Unknown]

NARRATIVE: CASE EVENT DATE: 20121205
